FAERS Safety Report 13488798 (Version 1)
Quarter: 2017Q2

REPORT INFORMATION
  Report Type: Spontaneous
  Country: US (occurrence: US)
  Receive Date: 20170426
  Receipt Date: 20170426
  Transmission Date: 20170830
  Serious: Yes (Hospitalization)
  Sender: FDA-Public Use
  Company Number: None

PATIENT
  Age: 51 Year
  Sex: Female

DRUGS (1)
  1. XELJANZ [Suspect]
     Active Substance: TOFACITINIB CITRATE
     Indication: RHEUMATOID ARTHRITIS
     Route: 048
     Dates: start: 20161012, end: 20170110

REACTIONS (6)
  - Colon gangrene [None]
  - Sepsis [None]
  - Loss of consciousness [None]
  - Gastroenteritis viral [None]
  - Upper respiratory tract infection [None]
  - Acute kidney injury [None]

NARRATIVE: CASE EVENT DATE: 20170110
